FAERS Safety Report 8209349-8 (Version None)
Quarter: 2012Q1

REPORT INFORMATION
  Report Type: 
  Country: None (occurrence: None)
  Receive Date: 20120314
  Receipt Date: 20120306
  Transmission Date: 20120608
  Serious: Yes (Death)
  Sender: FDA-Public Use
  Company Number: US-GENZYME-FABR-1002255

PATIENT
  Sex: Female

DRUGS (2)
  1. FABRAZYME [Suspect]
     Dosage: 1.0 MG/KG, Q2W
     Route: 042
     Dates: start: 20090901
  2. FABRAZYME [Suspect]
     Indication: FABRY'S DISEASE
     Dosage: UNK
     Route: 042
     Dates: start: 20060315

REACTIONS (1)
  - CEREBROVASCULAR ACCIDENT [None]
